FAERS Safety Report 5030039-7 (Version None)
Quarter: 2006Q2

REPORT INFORMATION
  Report Type: 
  Country: None (occurrence: None)
  Receive Date: 20060620
  Receipt Date: 20060614
  Transmission Date: 20061013
  Serious: Yes (Hospitalization)
  Sender: FDA-Public Use
  Company Number: BW-BRISTOL-MYERS SQUIBB COMPANY-13411228

PATIENT
  Sex: Male

DRUGS (2)
  1. EFAVIRENZ [Suspect]
     Indication: HIV INFECTION
     Route: 048
     Dates: start: 20051102
  2. COMBIVIR [Suspect]
     Indication: HIV INFECTION
     Dosage: COMBIVIR - TOTAL DAILY DOSE; 300/150 MG
     Route: 048
     Dates: start: 20051102

REACTIONS (1)
  - GASTROENTERITIS [None]
